FAERS Safety Report 24007213 (Version 1)
Quarter: 2024Q2

REPORT INFORMATION
  Report Type: Spontaneous
  Country: US (occurrence: US)
  Receive Date: 20240624
  Receipt Date: 20240624
  Transmission Date: 20240716
  Serious: Yes (Hospitalization, Other)
  Sender: FDA-Public Use
  Company Number: US-009507513-2406USA006843

PATIENT
  Age: 86 Year
  Sex: Female

DRUGS (6)
  1. CUBICIN [Suspect]
     Active Substance: DAPTOMYCIN
     Indication: Cellulitis
     Dosage: UNK
  2. CUBICIN [Suspect]
     Active Substance: DAPTOMYCIN
     Indication: Arthritis bacterial
  3. CUBICIN [Suspect]
     Active Substance: DAPTOMYCIN
     Indication: Staphylococcal infection
  4. CEFTRIAXONE [Concomitant]
     Active Substance: CEFTRIAXONE\CEFTRIAXONE SODIUM
     Indication: Cellulitis
     Dosage: UNK
  5. CEFTRIAXONE [Concomitant]
     Active Substance: CEFTRIAXONE\CEFTRIAXONE SODIUM
     Indication: Arthritis bacterial
  6. CEFTRIAXONE [Concomitant]
     Active Substance: CEFTRIAXONE\CEFTRIAXONE SODIUM
     Indication: Staphylococcal infection

REACTIONS (2)
  - Eosinophilic pneumonia [Recovering/Resolving]
  - Acute respiratory failure [Recovering/Resolving]
